FAERS Safety Report 5972714-3 (Version None)
Quarter: 2008Q4

REPORT INFORMATION
  Report Type: 
  Country: None (occurrence: None)
  Receive Date: 20081125
  Receipt Date: 20081113
  Transmission Date: 20090506
  Serious: Yes (Death)
  Sender: FDA-Public Use
  Company Number: 100#03#2008-03630

PATIENT
  Age: 43 Year
  Sex: Male

DRUGS (5)
  1. SERTRALINE [Suspect]
     Indication: DEPRESSION
     Dosage: 200 MG ONCE
     Route: 048
     Dates: start: 20060626
  2. ABILIFY [Suspect]
     Indication: MAJOR DEPRESSION
     Dosage: 15 MG ONCE
     Route: 048
     Dates: start: 20060626
  3. MIRTAZAPINE [Concomitant]
  4. ZOPICLONE (ZOPICLONE) [Concomitant]
  5. OLANZAPINE [Concomitant]

REACTIONS (2)
  - BLOOD ALCOHOL INCREASED [None]
  - COMPLETED SUICIDE [None]
